FAERS Safety Report 8261091-3 (Version None)
Quarter: 2012Q2

REPORT INFORMATION
  Report Type: 
  Country: None (occurrence: None)
  Receive Date: 20120402
  Receipt Date: 20120319
  Transmission Date: 20120825
  Serious: Yes (Hospitalization, Other)
  Sender: FDA-Public Use
  Company Number: 2012P1010309

PATIENT
  Age: 38 Year
  Sex: Female

DRUGS (2)
  1. VANCOMYCIN [Suspect]
     Indication: ENDOCARDITIS
  2. CEFUROXIME [Concomitant]

REACTIONS (2)
  - VASCULITIS NECROTISING [None]
  - LEUKOCYTOCLASTIC VASCULITIS [None]
